FAERS Safety Report 10928088 (Version 8)
Quarter: 2015Q3

REPORT INFORMATION
  Report Type: Report from Study
  Country: US (occurrence: US)
  Receive Date: 20150319
  Receipt Date: 20150917
  Transmission Date: 20151125
  Serious: Yes (Hospitalization, Other)
  Sender: FDA-Public Use
  Company Number: US-BIOGENIDEC-2015BI034411

PATIENT
  Age: 30 Year
  Sex: Female

DRUGS (3)
  1. TYSABRI [Suspect]
     Active Substance: NATALIZUMAB
     Indication: MULTIPLE SCLEROSIS
     Route: 042
     Dates: end: 20150606
  2. TYSABRI [Suspect]
     Active Substance: NATALIZUMAB
     Indication: MULTIPLE SCLEROSIS
     Route: 042
     Dates: start: 20140702, end: 20150415
  3. TYSABRI [Suspect]
     Active Substance: NATALIZUMAB
     Indication: MULTIPLE SCLEROSIS
     Route: 042
     Dates: start: 201406

REACTIONS (30)
  - Prescribed underdose [Unknown]
  - Localised infection [Unknown]
  - Disturbance in attention [Recovered/Resolved]
  - Optic nerve disorder [Not Recovered/Not Resolved]
  - Mobility decreased [Not Recovered/Not Resolved]
  - Pyrexia [Recovered/Resolved]
  - Drug intolerance [Not Recovered/Not Resolved]
  - Tunnel vision [Not Recovered/Not Resolved]
  - Skin necrosis [Unknown]
  - Osteomyelitis [Not Recovered/Not Resolved]
  - Central nervous system lesion [Not Recovered/Not Resolved]
  - Decubitus ulcer [Not Recovered/Not Resolved]
  - Progressive multiple sclerosis [Not Recovered/Not Resolved]
  - Diplopia [Not Recovered/Not Resolved]
  - Impaired self-care [Unknown]
  - Visual impairment [Unknown]
  - Sepsis [Not Recovered/Not Resolved]
  - Coma [Recovered/Resolved]
  - Muscle spasms [Not Recovered/Not Resolved]
  - Decreased immune responsiveness [Not Recovered/Not Resolved]
  - Drug ineffective [Unknown]
  - Wound infection [Unknown]
  - Faecal incontinence [Unknown]
  - Tremor [Not Recovered/Not Resolved]
  - Skin disorder [Not Recovered/Not Resolved]
  - Blindness [Not Recovered/Not Resolved]
  - Spinal deformity [Not Recovered/Not Resolved]
  - Eye movement disorder [Recovered/Resolved]
  - Muscle atrophy [Not Recovered/Not Resolved]
  - Coordination abnormal [Not Recovered/Not Resolved]

NARRATIVE: CASE EVENT DATE: 20140702
